FAERS Safety Report 8259342 (Version 4)
Quarter: 2014Q1

REPORT INFORMATION
  Report Type: Spontaneous
  Country: US (occurrence: US)
  Receive Date: 20111122
  Receipt Date: 20140327
  Transmission Date: 20141002
  Serious: Yes (Other)
  Sender: FDA-Public Use
  Company Number: US-ROCHE-792598

PATIENT
  Age: 27 Year
  Sex: Male
  Weight: 77.18 kg

DRUGS (3)
  1. ACCUTANE [Suspect]
     Indication: PSORIASIS
     Route: 065
  2. ACCUTANE [Suspect]
     Indication: ACNE
     Route: 065
  3. ACCUTANE [Suspect]
     Route: 065
     Dates: start: 19970618, end: 19970930

REACTIONS (9)
  - Colitis ulcerative [Unknown]
  - Proctitis ulcerative [Unknown]
  - Inflammatory bowel disease [Unknown]
  - Irritable bowel syndrome [Unknown]
  - Crohn^s disease [Unknown]
  - Blood cholesterol increased [Unknown]
  - Blood triglycerides increased [Unknown]
  - Lip dry [Unknown]
  - Dry skin [Unknown]
